FAERS Safety Report 23592673 (Version 2)
Quarter: 2024Q1

REPORT INFORMATION
  Report Type: Spontaneous
  Country: ES (occurrence: ES)
  Receive Date: 20240304
  Receipt Date: 20240319
  Transmission Date: 20240410
  Serious: Yes (Hospitalization, Other)
  Sender: FDA-Public Use
  Company Number: ES-BAXTER-2023BAX039383

PATIENT
  Age: 64 Year
  Sex: Female
  Weight: 50 kg

DRUGS (28)
  1. CYCLOPHOSPHAMIDE [Suspect]
     Active Substance: CYCLOPHOSPHAMIDE
     Indication: Diffuse large B-cell lymphoma stage III
     Dosage: 1162.5 MG, EVERY 3 WEEKS, ONGOING
     Route: 042
     Dates: start: 20231128
  2. DOXORUBICIN [Suspect]
     Active Substance: DOXORUBICIN
     Indication: Diffuse large B-cell lymphoma
     Dosage: 77.5 MG, EVERY 3 WEEK, ONGOING
     Route: 042
     Dates: start: 20231128
  3. EPCORITAMAB [Suspect]
     Active Substance: EPCORITAMAB
     Dosage: 0.8 MG INTERMEDIATE DOSE, C1, D1, TOTAL
     Route: 058
     Dates: start: 20231205, end: 20231205
  4. EPCORITAMAB [Suspect]
     Active Substance: EPCORITAMAB
     Indication: Diffuse large B-cell lymphoma stage III
     Dosage: 16 MG PRIMING DOSE, C1, D1, TOTAL
     Route: 058
     Dates: start: 20231128, end: 20231128
  5. EPCORITAMAB [Suspect]
     Active Substance: EPCORITAMAB
     Dosage: 48 MG FULL DOSE , C1, D15, AND 22, EVERY 1 WEEKS, ONGOING
     Route: 058
     Dates: start: 20231212
  6. PREDNISONE [Suspect]
     Active Substance: PREDNISONE
     Indication: Diffuse large B-cell lymphoma stage III
     Dosage: UNK, CL-6, DAY 1-5, EVERY 1 DAYS, ONGOING
     Route: 048
     Dates: start: 20231128
  7. RITUXIMAB [Suspect]
     Active Substance: RITUXIMAB
     Indication: Diffuse large B-cell lymphoma stage III
     Dosage: 581.25 MG, EVERY 3 WEEKS, ONGOING
     Route: 042
     Dates: start: 20231128
  8. VINCRISTINE [Suspect]
     Active Substance: VINCRISTINE
     Indication: Diffuse large B-cell lymphoma stage III
     Dosage: 100 MG, EVERY 3 WEEKS, ONGOING
     Route: 042
     Dates: start: 20231121
  9. ACETAMINOPHEN [Concomitant]
     Active Substance: ACETAMINOPHEN
     Indication: Pain prophylaxis
     Dosage: 1 G, AS NECESSARY
     Route: 065
     Dates: start: 20231011
  10. ACETAMINOPHEN [Concomitant]
     Active Substance: ACETAMINOPHEN
     Dosage: 1 G, AS NECESSARY ROUTE OF ADMIN (FREE TEXT): UNKNOWN ROUTE
     Route: 065
     Dates: start: 20231011
  11. ACYCLOVIR [Concomitant]
     Active Substance: ACYCLOVIR
     Indication: Infection prophylaxis
     Dosage: 800 MG, EVERY 24 HOURS
     Route: 065
     Dates: start: 20231120
  12. ALLOPURINOL [Concomitant]
     Active Substance: ALLOPURINOL
     Indication: Prophylaxis
     Dosage: 300 MG, EVERY 24 HOURS
     Route: 065
     Dates: start: 20231114, end: 20231218
  13. CODEINE [Concomitant]
     Active Substance: CODEINE
     Indication: Pain prophylaxis
     Dosage: 28.7 MG, EVERY 8 HOURS
     Route: 065
     Dates: start: 20231107
  14. CODEINE [Concomitant]
     Active Substance: CODEINE
     Dosage: 28.7 MG, EVERY 8 HOURS ROUTE OF ADMIN (FREE TEXT): UNKNOWN ROUTE
     Route: 065
     Dates: start: 20231107
  15. DEXAMETHASONE [Concomitant]
     Active Substance: DEXAMETHASONE
     Indication: Prophylaxis
     Dosage: 16 MG, EVERY 1 DAYS
     Route: 065
     Dates: start: 20231205
  16. SULPIRIDE [Concomitant]
     Active Substance: SULPIRIDE
     Indication: Prophylaxis
     Dosage: 50 MG, AS NECESSARY
     Route: 065
     Dates: start: 20231204
  17. GRANULOCYTE COLONY-STIMULATING FACTOR NOS [Concomitant]
     Active Substance: GRANULOCYTE COLONY-STIMULATING FACTOR NOS
     Indication: Neutropenia
     Dosage: 300 UG, AS NECESSARY ROUTE OF ADMIN (FREE TEXT): UNKNOWN ROUTE
     Route: 065
     Dates: start: 20231204
  18. GRANULOCYTE COLONY-STIMULATING FACTOR NOS [Concomitant]
     Active Substance: GRANULOCYTE COLONY-STIMULATING FACTOR NOS
     Indication: Prophylaxis
  19. IVABRADINE [Concomitant]
     Active Substance: IVABRADINE
     Indication: Arteriosclerosis coronary artery
     Dosage: 2.5 MG, EVERY 12 HOURS ROUTE OF ADMIN (FREE TEXT): UNKNOWN ROUTE
     Route: 065
  20. IVABRADINE [Concomitant]
     Active Substance: IVABRADINE
     Dosage: 2.5 MG, EVERY 12 HOURS ROUTE OF ADMIN (FREE TEXT): UNKNOWN ROUTE
     Route: 065
  21. LORAZEPAM [Concomitant]
     Active Substance: LORAZEPAM
     Indication: Psychiatric disorder prophylaxis
     Dosage: 1 MG, TWICE ROUTE OF ADMIN (FREE TEXT): UNKNOWN ROUTE
     Route: 065
  22. MOVICOL [Concomitant]
     Active Substance: POLYETHYLENE GLYCOL 3350\POTASSIUM CHLORIDE\SODIUM BICARBONATE\SODIUM CHLORIDE
     Indication: Constipation prophylaxis
     Dosage: 125 ML, AS NECESSARY
     Route: 065
     Dates: start: 20231121
  23. OMEPRAZOLE [Concomitant]
     Active Substance: OMEPRAZOLE
     Indication: Gastrointestinal disorder prophylaxis
     Dosage: 20 MG, EVERY 24 HOURS
     Route: 065
     Dates: start: 20231107
  24. ONDANSETRON [Concomitant]
     Active Substance: ONDANSETRON
     Indication: Prophylaxis of nausea and vomiting
     Dosage: 8 MG, AS NECESSARY
     Route: 065
     Dates: start: 20231121
  25. SULFAMETHOXAZOLE [Concomitant]
     Active Substance: SULFAMETHOXAZOLE
     Indication: Infection prophylaxis
     Dosage: 400 MG, 3/WEEKS
     Route: 065
     Dates: start: 20231120
  26. SULFAMETHOXAZOLE [Concomitant]
     Active Substance: SULFAMETHOXAZOLE
     Dosage: 400 MG, 3/WEEKS ROUTE OF ADMIN (FREE TEXT): UNKNOWN ROUTE
     Route: 065
     Dates: start: 20231120
  27. TRIMETHOPRIM [Concomitant]
     Active Substance: TRIMETHOPRIM
     Indication: Infection prophylaxis
     Dosage: 80 MG, 3/WEEKS
     Route: 065
     Dates: start: 20231120
  28. TRIMETHOPRIM [Concomitant]
     Active Substance: TRIMETHOPRIM
     Dosage: 80 MG, 3/WEEKS ROUTE OF ADMIN (FREE TEXT): UNKNOWN ROUTE
     Route: 065
     Dates: start: 20231120

REACTIONS (12)
  - Hepatic function abnormal [Unknown]
  - Productive cough [Recovered/Resolved]
  - Asthenia [Recovered/Resolved]
  - Cytokine release syndrome [Recovered/Resolved]
  - Headache [Unknown]
  - Musculoskeletal discomfort [Not Recovered/Not Resolved]
  - Influenza [Recovered/Resolved]
  - Arthralgia [Unknown]
  - Cough [Recovered/Resolved]
  - Myalgia [Unknown]
  - Pyrexia [Recovered/Resolved]
  - Dizziness [Unknown]

NARRATIVE: CASE EVENT DATE: 20231213
